FAERS Safety Report 5852225-6 (Version None)
Quarter: 2008Q3

REPORT INFORMATION
  Report Type: 
  Country: None (occurrence: None)
  Receive Date: 20080821
  Receipt Date: 20080820
  Transmission Date: 20090109
  Serious: Yes (Other)
  Sender: FDA-Public Use
  Company Number: DE-BRISTOL-MYERS SQUIBB COMPANY-14269898

PATIENT
  Age: 36 Year
  Sex: Female
  Weight: 61 kg

DRUGS (4)
  1. TAXOL [Suspect]
     Indication: BREAST CANCER
     Dosage: INITIATED ON: 06-MAR-2008  SUBSEQUENT CYCLES ON: 19MAR,02APR,16APR,30APR AND 14MAY08
     Route: 042
     Dates: start: 20080416, end: 20080416
  2. NEULASTA [Suspect]
     Indication: CHEMOTHERAPY
     Dosage: INITIATED ON 07MAR08. FOLLOWED BY SUBSEQUENT CYCLES OF TAXOL ON 19MAR08,2APR08,16APR08
     Route: 058
     Dates: start: 20080307, end: 20080307
  3. EPIRUBICIN [Concomitant]
     Indication: BREAST CANCER
     Dosage: INITIATED ON: 06MAR08 SUBSEQUENT CYCLES ON: 19MAR,2APR,16APR,30APR AND 14MAY08
     Route: 042
     Dates: start: 20080306, end: 20080306
  4. CYCLOPHOSPHAMIDE [Concomitant]
     Indication: BREAST CANCER
     Dosage: INITIATED ON 06MAR08 AND SUBSEQUENT CYCLES ON 19MAR,2APR,16APR,30APR AND 14MAY08
     Route: 042
     Dates: start: 20080306, end: 20080306

REACTIONS (1)
  - LEUKOCYTOSIS [None]
